APPROVED DRUG PRODUCT: ACETADOTE
Active Ingredient: ACETYLCYSTEINE
Strength: 6GM/30ML (200MG/ML)
Dosage Form/Route: INJECTABLE;INTRAVENOUS
Application: N021539 | Product #001 | TE Code: AP
Applicant: CUMBERLAND PHARMACEUTICALS INC
Approved: Jan 23, 2004 | RLD: Yes | RS: Yes | Type: RX

PATENTS:
Patent 9327028 | Expires: Jul 21, 2031
Patent 8722738 | Expires: Apr 6, 2032
Patent 8148356 | Expires: May 21, 2026

EXCLUSIVITY:
Code: D-196 | Date: Nov 26, 2027